FAERS Safety Report 6266688-8 (Version None)
Quarter: 2009Q3

REPORT INFORMATION
  Report Type: 
  Country: None (occurrence: None)
  Receive Date: 20090713
  Receipt Date: 20090709
  Transmission Date: 20100115
  Serious: Yes (Other)
  Sender: FDA-Public Use
  Company Number: US-RB-017837-09

PATIENT

DRUGS (2)
  1. SUBUTEX [Suspect]
     Route: 064
     Dates: start: 20060822, end: 20070501
  2. SUBOXONE [Suspect]
     Route: 064
     Dates: start: 20060801, end: 20060821

REACTIONS (2)
  - DRUG EXPOSURE DURING PREGNANCY [None]
  - SPEECH DISORDER DEVELOPMENTAL [None]
